APPROVED DRUG PRODUCT: CEFACLOR
Active Ingredient: CEFACLOR
Strength: EQ 250MG BASE
Dosage Form/Route: CAPSULE;ORAL
Application: A064061 | Product #001
Applicant: IVAX PHARMACEUTICALS INC SUB TEVA PHARMACEUTICALS USA
Approved: Apr 27, 1995 | RLD: No | RS: No | Type: DISCN